FAERS Safety Report 18441174 (Version 1)
Quarter: 2020Q4

REPORT INFORMATION
  Report Type: Report from Study
  Country: US (occurrence: US)
  Receive Date: 20201029
  Receipt Date: 20201029
  Transmission Date: 20210114
  Serious: Yes (Other)
  Sender: FDA-Public Use
  Company Number: US-GLAXOSMITHKLINE-US2020AMR212877

PATIENT
  Sex: Male

DRUGS (1)
  1. BELANTAMAB MAFODOTIN. [Suspect]
     Active Substance: BELANTAMAB MAFODOTIN
     Indication: PLASMA CELL MYELOMA
     Dosage: UNK, Q21 DAYS
     Route: 042

REACTIONS (3)
  - Cataract [Unknown]
  - Keratopathy [Unknown]
  - Myopia [Unknown]
